FAERS Safety Report 7530968-6 (Version None)
Quarter: 2011Q2

REPORT INFORMATION
  Report Type: 
  Country: None (occurrence: None)
  Receive Date: 20110531
  Receipt Date: 20110516
  Transmission Date: 20111010
  Serious: Yes (Hospitalization)
  Sender: FDA-Public Use
  Company Number: 2011MA005950

PATIENT
  Age: 68 Year
  Sex: Male

DRUGS (2)
  1. SULFATRIM PEDIATRIC [Suspect]
     Indication: NOCARDIOSIS
  2. IMIPENEM [Concomitant]

REACTIONS (5)
  - NOCARDIOSIS [None]
  - NO THERAPEUTIC RESPONSE [None]
  - LUNG NEOPLASM [None]
  - LUNG CONSOLIDATION [None]
  - DISEASE RECURRENCE [None]
